FAERS Safety Report 14159341 (Version 2)
Quarter: 2018Q1

REPORT INFORMATION
  Report Type: Spontaneous
  Country: JP (occurrence: JP)
  Receive Date: 20171103
  Receipt Date: 20180116
  Transmission Date: 20180508
  Serious: Yes (Hospitalization)
  Sender: FDA-Public Use
  Company Number: JP-CELGENEUS-JPN-20171000023

PATIENT
  Age: 68 Year
  Sex: Male

DRUGS (3)
  1. LENADEX [Suspect]
     Active Substance: DEXAMETHASONE ACETATE
     Indication: PLASMA CELL MYELOMA
     Route: 048
     Dates: start: 201612
  2. POMALYST [Suspect]
     Active Substance: POMALIDOMIDE
     Indication: PLASMA CELL MYELOMA
     Dosage: 4 MILLIGRAM
     Route: 048
     Dates: start: 20161206, end: 20170912
  3. REVLIMID [Suspect]
     Active Substance: LENALIDOMIDE
     Indication: PLASMA CELL MYELOMA
     Route: 048
     Dates: start: 20130827

REACTIONS (3)
  - Salivary gland cancer stage IV [Not Recovered/Not Resolved]
  - Muscle necrosis [Unknown]
  - Wound infection [Unknown]

NARRATIVE: CASE EVENT DATE: 2017
